FAERS Safety Report 10614129 (Version 1)
Quarter: 2014Q4

REPORT INFORMATION
  Report Type: Spontaneous
  Country: US (occurrence: US)
  Receive Date: 20141128
  Receipt Date: 20141128
  Transmission Date: 20150529
  Serious: No
  Sender: FDA-Public Use
  Company Number: DE-ASTRAZENECA-2014SE90891

PATIENT
  Sex: Female

DRUGS (2)
  1. VIMOVO [Suspect]
     Active Substance: ESOMEPRAZOLE MAGNESIUM\NAPROXEN
     Indication: BACK DISORDER
     Dosage: 1 DF DAILY
     Route: 048
  2. VIMOVO [Suspect]
     Active Substance: ESOMEPRAZOLE MAGNESIUM\NAPROXEN
     Indication: BACK DISORDER
     Dosage: 1 DF TWO TIMES A DAY
     Route: 048

REACTIONS (1)
  - Weight increased [Unknown]
